FAERS Safety Report 8605853-9 (Version None)
Quarter: 2012Q3

REPORT INFORMATION
  Report Type: 
  Country: None (occurrence: None)
  Receive Date: 20120820
  Receipt Date: 20120814
  Transmission Date: 20120928
  Serious: Yes (Death)
  Sender: FDA-Public Use
  Company Number: PE-GLAXOSMITHKLINE-A0990040A

PATIENT
  Sex: Male

DRUGS (1)
  1. FLUTICASONE PROPIONATE/SALMETEROL [Suspect]
     Indication: PULMONARY FIBROSIS
     Dosage: 1PUFF PER DAY
     Route: 055
     Dates: start: 20120323

REACTIONS (1)
  - CARDIAC ARREST [None]
